FAERS Safety Report 21973109 (Version 5)
Quarter: 2023Q2

REPORT INFORMATION
  Report Type: Report from Study
  Country: CO (occurrence: CO)
  Receive Date: 20230209
  Receipt Date: 20230525
  Transmission Date: 20230721
  Serious: Yes (Hospitalization, Other)
  Sender: FDA-Public Use
  Company Number: CO-UCBSA-2023001287

PATIENT
  Age: 24 Year
  Sex: Female

DRUGS (1)
  1. CERTOLIZUMAB PEGOL [Suspect]
     Active Substance: CERTOLIZUMAB PEGOL
     Indication: Psoriasis
     Dosage: 400 MILLIGRAM, EV 4 WEEKS
     Route: 058
     Dates: start: 20230102, end: 20230116

REACTIONS (14)
  - Hospitalisation [Recovered/Resolved]
  - Rash [Unknown]
  - Inflammation [Recovering/Resolving]
  - Application site rash [Recovering/Resolving]
  - Pruritus [Recovering/Resolving]
  - Eye pruritus [Recovering/Resolving]
  - Menstrual disorder [Recovering/Resolving]
  - Eye pain [Recovering/Resolving]
  - Decreased appetite [Recovering/Resolving]
  - Depressed mood [Recovering/Resolving]
  - Hepatic mass [Unknown]
  - Lymphadenopathy [Unknown]
  - Abdominal pain [Recovering/Resolving]
  - Abdominal distension [Recovering/Resolving]

NARRATIVE: CASE EVENT DATE: 20230102
